FAERS Safety Report 6137983-8 (Version None)
Quarter: 2009Q1

REPORT INFORMATION
  Report Type: 
  Country: None (occurrence: None)
  Receive Date: 20090331
  Receipt Date: 20090319
  Transmission Date: 20090719
  Serious: Yes (Other)
  Sender: FDA-Public Use
  Company Number: IE-ROCHE-618902

PATIENT
  Age: 60 Year
  Sex: Female

DRUGS (5)
  1. BONIVA [Suspect]
     Indication: OSTEOPOROSIS
     Dosage: PATIENT TAKES THE DRUG PER ORAL AND DOSE IS 150(DOSE UNIT NOT REPORTED).
     Route: 048
     Dates: start: 20081107, end: 20090108
  2. COPAXONE [Concomitant]
     Indication: MULTIPLE SCLEROSIS
     Dosage: FREQUENCY REPORTED AS DAILY.
     Route: 048
     Dates: start: 20050101
  3. LOSEC [Concomitant]
     Indication: DYSPEPSIA
     Dosage: FREQUENCY REPORTED AS DAILY.
     Route: 048
     Dates: start: 20040101
  4. SELECTOL [Concomitant]
     Indication: HYPERTENSION
     Dosage: FREQUENCY REPORTED AS DAILY.
     Route: 048
     Dates: start: 19960101
  5. FERREUX GLUCONATE [Concomitant]
     Indication: ANAEMIA
     Dosage: FREQUENCY : DAILY
     Route: 048
     Dates: start: 20050101

REACTIONS (2)
  - GUTTATE PSORIASIS [None]
  - PSORIASIS [None]
